FAERS Safety Report 6358968-2 (Version None)
Quarter: 2009Q3

REPORT INFORMATION
  Report Type: 
  Country: None (occurrence: None)
  Receive Date: 20090914
  Receipt Date: 20090831
  Transmission Date: 20100115
  Serious: No
  Sender: FDA-Public Use
  Company Number: 007447

PATIENT
  Age: 95 Year
  Sex: Male

DRUGS (2)
  1. PLETAL [Suspect]
     Indication: ARTERIOSCLEROSIS OBLITERANS
     Dosage: 100 MG, BID,
     Route: 048
     Dates: start: 20090430, end: 20090529
  2. CANDESARTAN CILEXETIL [Concomitant]

REACTIONS (3)
  - CONDITION AGGRAVATED [None]
  - OEDEMA [None]
  - RENAL IMPAIRMENT [None]
